FAERS Safety Report 10848194 (Version 1)
Quarter: 2015Q1

REPORT INFORMATION
  Report Type: Spontaneous
  Country: US (occurrence: US)
  Receive Date: 20150220
  Receipt Date: 20150220
  Transmission Date: 20150721
  Serious: No
  Sender: FDA-Public Use
  Company Number: US-CELGENEUS-163-21880-14031903

PATIENT
  Sex: Female

DRUGS (1)
  1. REVLIMID [Suspect]
     Active Substance: LENALIDOMIDE
     Indication: PLASMA CELL MYELOMA
     Dosage: 10 MILLIGRAM
     Route: 048
     Dates: start: 201311, end: 2014

REACTIONS (6)
  - Rash [Unknown]
  - Stomatitis [Unknown]
  - Dysphagia [Unknown]
  - Nausea [Unknown]
  - Vomiting [Unknown]
  - Kidney infection [Unknown]
